FAERS Safety Report 4303788-3 (Version None)
Quarter: 2004Q1

REPORT INFORMATION
  Report Type: 
  Country: None (occurrence: None)
  Receive Date: 20040224
  Receipt Date: 20040224
  Transmission Date: 20041129
  Serious: Yes (Life-Threatening, Hospitalization)
  Sender: FDA-Public Use
  Company Number: None

PATIENT
  Age: 76 Year
  Sex: Male
  Weight: 96.1626 kg

DRUGS (1)
  1. COUMADIN [Suspect]
     Indication: CEREBROVASCULAR DISORDER
     Dosage: PO
     Route: 048

REACTIONS (5)
  - ASTHENIA [None]
  - CEREBRAL HAEMORRHAGE [None]
  - DYSARTHRIA [None]
  - HYPERTENSION [None]
  - VISION BLURRED [None]
